FAERS Safety Report 23066752 (Version 2)
Quarter: 2023Q4

REPORT INFORMATION
  Report Type: Spontaneous
  Country: SI (occurrence: SI)
  Receive Date: 20231016
  Receipt Date: 20231028
  Transmission Date: 20240109
  Serious: Yes (Life-Threatening, Hospitalization, Other)
  Sender: FDA-Public Use
  Company Number: SI-MACLEODS PHARMACEUTICALS US LTD-MAC2023043815

PATIENT

DRUGS (16)
  1. OLANZAPINE [Interacting]
     Active Substance: OLANZAPINE
     Indication: Schizophrenia
     Dosage: 5 MILLIGRAM, QD (TIME TO ONSET: 7 DAYS)
     Route: 065
     Dates: start: 20230116, end: 202301
  2. OLANZAPINE [Interacting]
     Active Substance: OLANZAPINE
     Dosage: 15 MILLIGRAM, QD (TIME TO ONSET: 7 DAYS)
     Route: 065
     Dates: start: 20230118, end: 20230122
  3. OLANZAPINE [Interacting]
     Active Substance: OLANZAPINE
     Dosage: 20 MILLIGRAM, QD (IN DIVIDED DOSES)
     Route: 065
     Dates: start: 20230123, end: 20230123
  4. QUETIAPINE [Suspect]
     Active Substance: QUETIAPINE
     Indication: Schizophrenia
     Dosage: 50 MILLIGRAM, QD (STOP DATE: 22 FEB 2023) (TIME TO ONSET: 7 DAYS)
     Route: 065
     Dates: start: 20230113, end: 20230118
  5. QUETIAPINE [Suspect]
     Active Substance: QUETIAPINE
     Dosage: 100 MILLIGRAM, QD (TIME TO ONSET: 7 DAYS)
     Route: 065
     Dates: start: 20230123, end: 20230202
  6. QUETIAPINE [Suspect]
     Active Substance: QUETIAPINE
     Dosage: 25 MILLIGRAM, QD (TIME TO ONSET: 7 DAYS)
     Route: 065
     Dates: start: 20230202, end: 20230222
  7. RISPERIDONE [Suspect]
     Active Substance: RISPERIDONE
     Indication: Schizophrenia
     Dosage: 4 MILLIGRAM, QD
     Route: 065
     Dates: start: 20221216, end: 20221227
  8. RISPERIDONE [Suspect]
     Active Substance: RISPERIDONE
     Dosage: 5 MILLIGRAM, QD
     Route: 065
     Dates: start: 20221227, end: 20230112
  9. RISPERIDONE [Suspect]
     Active Substance: RISPERIDONE
     Dosage: 9 MILLIGRAM, QD
     Route: 065
     Dates: start: 20230112, end: 20230113
  10. RISPERIDONE [Suspect]
     Active Substance: RISPERIDONE
     Dosage: 8 MILLIGRAM, QD
     Route: 065
     Dates: start: 20230113, end: 20230116
  11. RISPERIDONE [Suspect]
     Active Substance: RISPERIDONE
     Dosage: 6 MILLIGRAM, QD
     Route: 065
     Dates: start: 20230116, end: 20230118
  12. RISPERIDONE [Suspect]
     Active Substance: RISPERIDONE
     Dosage: UNK UNK, QD (DOSE WAS FURTHER TITRATED)
     Route: 065
     Dates: start: 202212, end: 202212
  13. BIPERIDEN [Concomitant]
     Active Substance: BIPERIDEN
     Indication: Extrapyramidal disorder
     Dosage: 2 MILLIGRAM, BID
     Route: 065
     Dates: start: 20230112, end: 202301
  14. BIPERIDEN [Concomitant]
     Active Substance: BIPERIDEN
     Indication: Parkinsonism
     Dosage: 3 MILLIGRAM, QD
     Route: 065
     Dates: start: 202301
  15. LORAZEPAM [Concomitant]
     Active Substance: LORAZEPAM
     Indication: Product used for unknown indication
     Dosage: 3 MILLIGRAM
     Route: 065
  16. SALINE [Concomitant]
     Active Substance: SODIUM CHLORIDE
     Indication: Product used for unknown indication
     Dosage: UNK
     Route: 065
     Dates: start: 202301

REACTIONS (7)
  - Cardiac arrest [Recovered/Resolved]
  - Atrial fibrillation [Recovering/Resolving]
  - Circulatory collapse [Unknown]
  - Pneumonia aspiration [Unknown]
  - Epilepsy [Recovered/Resolved]
  - Normocytic anaemia [Unknown]
  - Pulmonary embolism [Recovering/Resolving]

NARRATIVE: CASE EVENT DATE: 20230101
